FAERS Safety Report 9205723 (Version 1)
Quarter: 2013Q2

REPORT INFORMATION
  Report Type: Spontaneous
  Country: US (occurrence: None)
  Receive Date: 20130401
  Receipt Date: 20130401
  Transmission Date: 20140414
  Serious: Yes (Death)
  Sender: FDA-Public Use
  Company Number: 2013-05350

PATIENT
  Age: 78 Year
  Sex: Male

DRUGS (3)
  1. METFORMIN HYDROCHLORIDE [Suspect]
     Indication: TYPE 2 DIABETES MELLITUS
     Route: 048
     Dates: start: 20120101, end: 20130128
  2. ENAPREN (ENALAPRIL MALEATE) [Concomitant]
  3. ACETYLSALICYLIC ACID ALUMINIUM (ACETYLSALICYLIC ACID ALUMINIUM) [Concomitant]

REACTIONS (3)
  - Prerenal failure [None]
  - Lactic acidosis [None]
  - Drug abuse [None]
